FAERS Safety Report 9146846 (Version 2)
Quarter: 2013Q2

REPORT INFORMATION
  Report Type: Spontaneous
  Country: BF (occurrence: BF)
  Receive Date: 20130307
  Receipt Date: 20130614
  Transmission Date: 20140414
  Serious: Yes (Hospitalization, Other)
  Sender: FDA-Public Use
  Company Number: BF-009507513-1303BFA002725

PATIENT
  Age: 6 Year
  Sex: Male

DRUGS (4)
  1. IVERMECTIN [Suspect]
     Indication: ONCHOCERCIASIS
     Dosage: 1 DF, UNK
     Dates: start: 20130130
  2. IVERMECTIN [Suspect]
     Indication: FILARIASIS LYMPHATIC
  3. ALBENDAZOLE [Suspect]
     Indication: ONCHOCERCIASIS
     Dosage: 1 DF, UNK
     Dates: start: 20130130
  4. ALBENDAZOLE [Suspect]
     Indication: FILARIASIS LYMPHATIC

REACTIONS (5)
  - Blister [Not Recovered/Not Resolved]
  - Skin exfoliation [Not Recovered/Not Resolved]
  - Skin lesion [Not Recovered/Not Resolved]
  - Toxic epidermal necrolysis [Not Recovered/Not Resolved]
  - Rash generalised [Not Recovered/Not Resolved]
